FAERS Safety Report 10081351 (Version 3)
Quarter: 2014Q3

REPORT INFORMATION
  Report Type: Spontaneous
  Country: US (occurrence: None)
  Receive Date: 20140414
  Receipt Date: 20140926
  Transmission Date: 20150326
  Serious: Yes (Death)
  Sender: FDA-Public Use
  Company Number: UTC-046870

PATIENT
  Age: 56 Year
  Sex: Female
  Weight: 119 kg

DRUGS (11)
  1. PANTOPRAZOLE (PANTOPRAZOLE) [Concomitant]
     Active Substance: PANTOPRAZOLE SODIUM
  2. REMODULIN [Suspect]
     Active Substance: TREPROSTINIL
     Indication: PULMONARY ARTERIAL HYPERTENSION
     Dosage: (0.04 UG/KG, CONTINUING, INTRAVENOUS
     Route: 041
     Dates: start: 20100219
  3. PERCOCET (TYLOX) [Concomitant]
  4. POTASSIUM (POTASSIUM) [Concomitant]
     Active Substance: POTASSIUM
  5. BUMEX (BUMETANIDE) [Concomitant]
  6. ATIVAN [Concomitant]
     Active Substance: LORAZEPAM
  7. PREDNISONE (PREDNISONE) [Concomitant]
     Active Substance: PREDNISONE
  8. DIGOXIN (DIGOXIN) [Concomitant]
     Active Substance: DIGOXIN
  9. SINGULAR (MONTELUKAST) [Concomitant]
  10. LASIX [Concomitant]
     Active Substance: FUROSEMIDE
  11. METFORMIN [Concomitant]
     Active Substance: METFORMIN HYDROCHLORIDE

REACTIONS (1)
  - Death [None]

NARRATIVE: CASE EVENT DATE: 20140331
